FAERS Safety Report 20450321 (Version 1)
Quarter: 2022Q1

REPORT INFORMATION
  Report Type: Spontaneous
  Country: US (occurrence: US)
  Receive Date: 20220209
  Receipt Date: 20220209
  Transmission Date: 20220423
  Serious: No
  Sender: FDA-Public Use
  Company Number: US-SA-SAC20220203001505

PATIENT
  Age: 42 Year
  Sex: Male

DRUGS (3)
  1. DUPIXENT [Suspect]
     Active Substance: DUPILUMAB
     Indication: Dermatitis atopic
     Route: 058
     Dates: start: 20211214
  2. ZYLET [Concomitant]
     Active Substance: LOTEPREDNOL ETABONATE\TOBRAMYCIN
     Indication: Dry eye
  3. ZYLET [Concomitant]
     Active Substance: LOTEPREDNOL ETABONATE\TOBRAMYCIN
     Indication: Conjunctivitis

REACTIONS (2)
  - Eyelid skin dryness [Unknown]
  - Conjunctivitis [Unknown]
